FAERS Safety Report 8232729-1 (Version None)
Quarter: 2012Q1

REPORT INFORMATION
  Report Type: 
  Country: None (occurrence: None)
  Receive Date: 20120323
  Receipt Date: 20120319
  Transmission Date: 20120608
  Serious: Yes (Death, Other)
  Sender: FDA-Public Use
  Company Number: EG-ABBOTT-12P-048-0916610-00

PATIENT

DRUGS (1)
  1. DEPAKENE [Suspect]
     Indication: MATERNAL EXPOSURE TIMING UNSPECIFIED
     Route: 064

REACTIONS (6)
  - SEPSIS [None]
  - FOETAL EXPOSURE DURING PREGNANCY [None]
  - ENCEPHALITIC INFECTION [None]
  - HAEMORRHAGE [None]
  - CAESAREAN SECTION [None]
  - HYPOXIA [None]
